FAERS Safety Report 10010087 (Version 2)
Quarter: 2014Q1

REPORT INFORMATION
  Report Type: Spontaneous
  Country: US (occurrence: US)
  Receive Date: 20140313
  Receipt Date: 20140331
  Transmission Date: 20141002
  Serious: Yes (Other)
  Sender: FDA-Public Use
  Company Number: US-RB-064442-14

PATIENT
  Age: 28 Year
  Sex: Female

DRUGS (2)
  1. BUPRENORPHINE GENERIC [Suspect]
     Indication: DRUG DEPENDENCE
     Dosage: THE PATIENT WAS CUTTING THE TABLET TO ACHIEVE DAILY DOSING REGIMEN; TAKING 2 AND 1/2 TABLETS DAILY
     Route: 060
  2. NICOTINE [Concomitant]
     Indication: NICOTINE DEPENDENCE
     Dosage: DOSING: 1/4 TO 1/2 PACK OF CIGARETTES DAILY
     Route: 055

REACTIONS (3)
  - Wrong technique in drug usage process [Not Recovered/Not Resolved]
  - Maternal exposure during pregnancy [Recovered/Resolved]
  - Abortion spontaneous [Recovered/Resolved]
